FAERS Safety Report 8128763-2 (Version None)
Quarter: 2012Q1

REPORT INFORMATION
  Report Type: 
  Country: None (occurrence: None)
  Receive Date: 20120210
  Receipt Date: 20120126
  Transmission Date: 20120608
  Serious: Yes (Other)
  Sender: FDA-Public Use
  Company Number: US-WATSON-2012-02019

PATIENT
  Age: 34 Year
  Sex: Female

DRUGS (4)
  1. TACROLIMUS [Suspect]
     Indication: RENAL TRANSPLANT
     Dosage: 1 MG BID
  2. MYCOPHENOLATE MEFETIL [Suspect]
     Indication: RENAL TRANSPLANT
     Dosage: 500 MG BID
  3. MYCOPHENOLATE MEFETIL [Suspect]
     Dosage: 500 MG QID
  4. PREDNISONE TAB [Suspect]
     Indication: RENAL TRANSPLANT
     Dosage: 2.5 MG DAILY

REACTIONS (2)
  - IMMUNE RECONSTITUTION SYNDROME [None]
  - CRYPTOCOCCOSIS [None]
